FAERS Safety Report 23504224 (Version 2)
Quarter: 2024Q1

REPORT INFORMATION
  Report Type: Spontaneous
  Country: DE (occurrence: DE)
  Receive Date: 20240209
  Receipt Date: 20240228
  Transmission Date: 20240410
  Serious: Yes (Other)
  Sender: FDA-Public Use
  Company Number: DE-BRISTOL-MYERS SQUIBB COMPANY-BMS-2022-015681

PATIENT
  Age: 57 Year
  Sex: Male

DRUGS (21)
  1. CARBOPLATIN [Suspect]
     Active Substance: CARBOPLATIN
     Dosage: 667 MG, QMO
     Route: 042
     Dates: start: 20211117, end: 20211117
  2. CARBOPLATIN [Suspect]
     Active Substance: CARBOPLATIN
     Indication: Non-small cell lung cancer
     Dosage: 732 MG, QMO
     Route: 042
     Dates: start: 20211028, end: 20211117
  3. OPDIVO [Suspect]
     Active Substance: NIVOLUMAB
     Indication: Non-small cell lung cancer
     Dosage: 360 MG, QMO
     Route: 042
     Dates: start: 20211028
  4. YERVOY [Suspect]
     Active Substance: IPILIMUMAB
     Dosage: 74 MG
     Route: 042
     Dates: start: 20211028
  5. YERVOY [Suspect]
     Active Substance: IPILIMUMAB
     Indication: Non-small cell lung cancer
     Dosage: 82 MG, QMO
     Route: 042
     Dates: start: 20211028
  6. Aceoto [Concomitant]
     Indication: Product used for unknown indication
     Dosage: UNK
     Route: 065
     Dates: start: 20211004, end: 20211025
  7. AKYNZEO [Concomitant]
     Indication: Product used for unknown indication
     Dosage: UNK
     Route: 065
     Dates: start: 20210902
  8. FOLIC ACID [Concomitant]
     Active Substance: FOLIC ACID
     Indication: Product used for unknown indication
     Dosage: UNK, Q3MO
     Route: 065
     Dates: start: 20210824, end: 20211124
  9. GRANISETRONUM [Concomitant]
     Indication: Product used for unknown indication
     Dosage: UNK
     Route: 065
     Dates: start: 20211208
  10. HC HYDROCORTISON [Concomitant]
     Indication: Product used for unknown indication
     Dosage: UNK
     Route: 065
     Dates: start: 20211123
  11. KEPPRA [Concomitant]
     Active Substance: LEVETIRACETAM
     Indication: Product used for unknown indication
     Dosage: UNK
     Route: 065
     Dates: start: 20210809
  12. LEVOTHYROXINE SODIUM [Concomitant]
     Active Substance: LEVOTHYROXINE SODIUM
     Indication: Product used for unknown indication
     Dosage: UNK
     Route: 065
     Dates: start: 20220324
  13. PANTOZOL [Concomitant]
     Active Substance: PANTOPRAZOLE SODIUM
     Indication: Prophylaxis
     Dosage: UNK
     Route: 065
     Dates: start: 20210809
  14. PEMETREXED [Concomitant]
     Active Substance: PEMETREXED
     Indication: Product used for unknown indication
     Dosage: 970 MG
     Route: 042
     Dates: start: 20211028, end: 20211117
  15. PEMETREXED [Concomitant]
     Active Substance: PEMETREXED
     Dosage: UNK
     Route: 042
     Dates: start: 20211117, end: 20211117
  16. PREDNICARB [Concomitant]
     Indication: Product used for unknown indication
     Dosage: CREME
     Route: 065
     Dates: start: 20211104, end: 20211127
  17. PREDNICARB [Concomitant]
     Dosage: CREMEUNK
     Route: 065
     Dates: start: 20211104, end: 20211127
  18. PREDNICARB [Concomitant]
     Dosage: CREMEUNK
     Route: 065
     Dates: start: 20211104, end: 20211127
  19. PREDNICARB [Concomitant]
     Dosage: CREMEUNK
     Route: 065
     Dates: start: 20211104, end: 20211127
  20. Prednitop [Concomitant]
     Indication: Product used for unknown indication
     Dosage: UNK
     Route: 065
     Dates: start: 20221108
  21. CHOLECALCIFEROL [Concomitant]
     Active Substance: CHOLECALCIFEROL
     Indication: Prophylaxis
     Dosage: UNK
     Route: 065
     Dates: start: 20210830

REACTIONS (13)
  - Hypothyroidism [Recovering/Resolving]
  - Haemoglobin decreased [Recovered/Resolved]
  - Immune-mediated hypothyroidism [Recovered/Resolved]
  - Constipation [Recovered/Resolved]
  - Haemoglobin decreased [Recovered/Resolved]
  - Rash [Recovered/Resolved]
  - Ear pain [Recovered/Resolved]
  - Speech disorder [Recovered/Resolved]
  - Dizziness [Recovered/Resolved]
  - Weight increased [Recovered/Resolved]
  - Immune-mediated dermatitis [Not Recovered/Not Resolved]
  - Off label use [Unknown]
  - Expired product administered [Unknown]

NARRATIVE: CASE EVENT DATE: 20211104
